FAERS Safety Report 11810998 (Version 5)
Quarter: 2016Q1

REPORT INFORMATION
  Report Type: Spontaneous
  Country: US (occurrence: US)
  Receive Date: 20151208
  Receipt Date: 20160229
  Transmission Date: 20160525
  Serious: Yes (Hospitalization)
  Sender: FDA-Public Use
  Company Number: US-HORIZON-ACT-0215-2015

PATIENT
  Age: 5 Year
  Sex: Male

DRUGS (2)
  1. ACTIMMUNE [Suspect]
     Active Substance: INTERFERON GAMMA-1B
     Indication: CHRONIC GRANULOMATOUS DISEASE
     Dosage: 30 ?G, THREE TIMES PER WEEK
     Dates: start: 20121005, end: 20151118
  2. ITRACONAZOLE. [Concomitant]
     Active Substance: ITRACONAZOLE

REACTIONS (2)
  - Pneumonia [Recovered/Resolved]
  - Lung lobectomy [Recovered/Resolved]

NARRATIVE: CASE EVENT DATE: 201511
